FAERS Safety Report 8085540-9 (Version None)
Quarter: 2012Q1

REPORT INFORMATION
  Report Type: 
  Country: None (occurrence: None)
  Receive Date: 20120128
  Receipt Date: 20110517
  Transmission Date: 20120608
  Serious: No
  Sender: FDA-Public Use
  Company Number: US-ABBOTT-11P-163-0713516-00

PATIENT
  Sex: Female
  Weight: 75.818 kg

DRUGS (10)
  1. ALBUTEROL [Concomitant]
     Indication: PRODUCT USED FOR UNKNOWN INDICATION
  2. FORVIA [Concomitant]
     Indication: VITAMIN SUPPLEMENTATION
  3. CALCIUM [Concomitant]
     Indication: MINERAL SUPPLEMENTATION
  4. HUMIRA [Suspect]
     Indication: CROHN'S DISEASE
     Dates: start: 20100401
  5. FISH OIL [Concomitant]
     Indication: VITAMIN SUPPLEMENTATION
  6. VITAMIN B-12 [Concomitant]
     Indication: VITAMIN SUPPLEMENTATION
  7. ASPIRIN [Concomitant]
     Indication: PROPHYLAXIS
  8. VITAMIN TAB [Concomitant]
     Indication: VITAMIN SUPPLEMENTATION
  9. PREDNISONE TAB [Concomitant]
     Indication: CROHN'S DISEASE
  10. XANAX [Concomitant]
     Indication: PRODUCT USED FOR UNKNOWN INDICATION

REACTIONS (6)
  - ABDOMINAL PAIN UPPER [None]
  - INFLUENZA [None]
  - ABDOMINAL PAIN [None]
  - PNEUMONIA [None]
  - FREQUENT BOWEL MOVEMENTS [None]
  - DRUG INEFFECTIVE [None]
